FAERS Safety Report 10562231 (Version 1)
Quarter: 2014Q4

REPORT INFORMATION
  Report Type: Spontaneous
  Country: HR (occurrence: None)
  Receive Date: 20141031
  Receipt Date: 20141031
  Transmission Date: 20150529
  Serious: Yes (Hospitalization)
  Sender: FDA-Public Use
  Company Number: IMP_07988_2014

PATIENT
  Age: 26 Year
  Sex: Male

DRUGS (2)
  1. SERTRALINE [Suspect]
     Active Substance: SERTRALINE HYDROCHLORIDE
     Indication: BIPOLAR DISORDER
  2. DIVALPROEX [Suspect]
     Active Substance: DIVALPROEX SODIUM
     Indication: BIPOLAR DISORDER

REACTIONS (7)
  - Sensory loss [None]
  - Suicide attempt [None]
  - Neuropathy peripheral [None]
  - Sopor [None]
  - Mental status changes [None]
  - Toxicity to various agents [None]
  - Muscular weakness [None]

NARRATIVE: CASE EVENT DATE: 201208
